FAERS Safety Report 15289767 (Version 1)
Quarter: 2018Q3

REPORT INFORMATION
  Report Type: Spontaneous
  Country: US (occurrence: US)
  Receive Date: 20180817
  Receipt Date: 20180817
  Transmission Date: 20181010
  Serious: No
  Sender: FDA-Public Use
  Company Number: US-B.I. PHARMACEUTICALS,INC./RIDGEFIELD-2018-BI-040780

PATIENT
  Sex: Female

DRUGS (1)
  1. SPIRIVA RESPIMAT [Suspect]
     Active Substance: TIOTROPIUM BROMIDE
     Indication: PRODUCT USED FOR UNKNOWN INDICATION
     Dosage: STRENGTH: 2.5 MCG; ADMINISTRATION CORRECT? NO; ACTION TAKEN: DOSE NOT CHANGED
     Route: 055
     Dates: start: 2018

REACTIONS (5)
  - Sneezing [Unknown]
  - Drug ineffective [Unknown]
  - Incorrect dose administered [Unknown]
  - Fatigue [Unknown]
  - Choking [Unknown]

NARRATIVE: CASE EVENT DATE: 2018
